FAERS Safety Report 8633232 (Version 2)
Quarter: 2012Q4

REPORT INFORMATION
  Report Type: 
  Country: US (occurrence: US)
  Receive Date: 20120625
  Receipt Date: 20121004
  Transmission Date: 20130627
  Serious: Yes (Death, Other)
  Sender: FDA-Public Use
  Company Number: US-PFIZER INC-2012148263

PATIENT
  Age: 86 Year
  Sex: Male

DRUGS (18)
  1. XALKORI [Suspect]
     Indication: NON-SMALL CELL LUNG CANCER
     Dosage: 250 mg, 2x/day
     Route: 048
     Dates: start: 20120321, end: 20120521
  2. TAXOL [Concomitant]
     Indication: NON-SMALL CELL LUNG CANCER
     Dosage: D1 every 21 days
     Dates: start: 20111108, end: 20120326
  3. CARBOPLATIN [Concomitant]
     Indication: NON-SMALL CELL LUNG CANCER
     Dosage: D1 every 21 days
     Dates: start: 20111108, end: 20120326
  4. ALBUTEROL [Concomitant]
     Dosage: prn
  5. SALBUTAMOL W/IPRATROPIUM [Concomitant]
     Dosage: 2.5 mg-0.5 mg/3 ml inhalation solution: daily
     Route: 055
  6. DOXYCYCLINE HYCLATE [Concomitant]
     Dosage: 100 mg, 2x/day
     Route: 048
  7. DYAZIDE [Concomitant]
     Dosage: 1 capsule daily in the morning
     Route: 048
  8. HYDROXYZINE [Concomitant]
     Dosage: 25 mg, q6 hrs (4x/day)
  9. LEVAQUIN [Concomitant]
     Dosage: 500 mg, 1x/day, x 7
  10. NORVASC [Concomitant]
     Dosage: 5 mg, daily
  11. PREDNISONE [Concomitant]
     Dosage: 60mg x 5, 40mg x 5, 20mg qd
  12. PROMETHAZINE [Concomitant]
     Indication: NAUSEA
     Dosage: 25 mg, 1 tab by mouth every 4-6 hours as needed
     Route: 048
  13. PROMETHAZINE [Concomitant]
     Indication: VOMITING
  14. SINGULAIR [Concomitant]
     Dosage: 10 mg, qhs
  15. SPIRIVA [Concomitant]
     Dosage: UNK
  16. SYMBICORT [Concomitant]
     Dosage: UNK
  17. TESSALON PERLE [Concomitant]
     Dosage: 1 capsule 3 times per day as needed
     Route: 048
  18. ZOFRAN [Concomitant]
     Indication: NAUSEA
     Dosage: one every 8 hours as needed

REACTIONS (5)
  - Death [Fatal]
  - Pneumonia [Unknown]
  - Chronic obstructive pulmonary disease [Unknown]
  - Radiation pneumonitis [Unknown]
  - Rash pustular [Unknown]
